FAERS Safety Report 15985182 (Version 2)
Quarter: 2019Q2

REPORT INFORMATION
  Report Type: Spontaneous
  Country: US (occurrence: US)
  Receive Date: 20190220
  Receipt Date: 20190410
  Transmission Date: 20190711
  Serious: No
  Sender: FDA-Public Use
  Company Number: US-TEVA-2019-US-1003381

PATIENT
  Age: 75 Year
  Sex: Male
  Weight: 77 kg

DRUGS (4)
  1. AMBIEN [Concomitant]
     Active Substance: ZOLPIDEM TARTRATE
     Indication: SLEEP DISORDER
     Route: 065
  2. DOXAZOSIN [Concomitant]
     Active Substance: DOXAZOSIN\DOXAZOSIN MESYLATE
     Indication: PROSTATOMEGALY
     Route: 065
  3. FLUTICASONE PROPIONATE AND SALMETEROL INHALATION POWDER [Suspect]
     Active Substance: FLUTICASONE PROPIONATE\SALMETEROL XINAFOATE
     Indication: ASTHMA
     Dosage: FLUTICASONE PROPIONATE 113 MCG AND SALMETEROL INHALATION 14 MCG POWDER 1PUFF MORNING AND NIGHT.
     Route: 065
     Dates: start: 2018
  4. ALBUTEROL INHALER [Concomitant]
     Active Substance: ALBUTEROL
     Route: 065

REACTIONS (3)
  - Extra dose administered [Unknown]
  - Blood pressure increased [Not Recovered/Not Resolved]
  - Dyspnoea [Recovered/Resolved]

NARRATIVE: CASE EVENT DATE: 20190121
